FAERS Safety Report 5419884-3 (Version None)
Quarter: 2007Q3

REPORT INFORMATION
  Report Type: 
  Country: None (occurrence: None)
  Receive Date: 20070820
  Receipt Date: 20070305
  Transmission Date: 20080115
  Serious: Yes (Hospitalization)
  Sender: FDA-Public Use
  Company Number: DE-PFIZER INC-2006111477

PATIENT
  Sex: Male
  Weight: 97 kg

DRUGS (6)
  1. SU-011,248 [Suspect]
     Indication: METASTATIC RENAL CELL CARCINOMA
     Route: 048
     Dates: start: 20060522, end: 20060618
  2. SU-011,248 [Suspect]
     Route: 048
     Dates: start: 20060717, end: 20060814
  3. RIOPAN [Concomitant]
     Route: 048
  4. PANTOPRAZOL [Concomitant]
  5. DEXAMETHASONE 0.5MG TAB [Concomitant]
  6. CALCITRIOL [Concomitant]
     Route: 048

REACTIONS (1)
  - NECROSIS [None]
